FAERS Safety Report 18742014 (Version 1)
Quarter: 2021Q1

REPORT INFORMATION
  Report Type: Spontaneous
  Country: US (occurrence: US)
  Receive Date: 20210114
  Receipt Date: 20210114
  Transmission Date: 20210419
  Serious: No
  Sender: FDA-Public Use
  Company Number: US-SA-2021SA009896

PATIENT
  Age: 60 Year
  Sex: Female

DRUGS (2)
  1. NA [Concomitant]
     Active Substance: SODIUM
     Dosage: UNK
  2. LANTUS SOLOSTAR [Suspect]
     Active Substance: INSULIN GLARGINE
     Dosage: 40 IU, Q12H

REACTIONS (2)
  - Inappropriate schedule of product administration [Unknown]
  - Product physical issue [Unknown]
